FAERS Safety Report 16462766 (Version 1)
Quarter: 2019Q2

REPORT INFORMATION
  Report Type: Spontaneous
  Country: US (occurrence: US)
  Receive Date: 20190512
  Receipt Date: 20190512
  Transmission Date: 20190711
  Serious: No
  Sender: FDA-Public Use
  Company Number: None

PATIENT
  Age: 54 Year
  Sex: Male

DRUGS (1)
  1. NINLARO [Suspect]
     Active Substance: IXAZOMIB CITRATE
     Indication: PLASMA CELL MYELOMA
     Dosage: SEE EVENT
     Route: 048
     Dates: start: 20170524

REACTIONS (2)
  - Back pain [None]
  - Peripheral swelling [None]

NARRATIVE: CASE EVENT DATE: 201901
